FAERS Safety Report 4307533-7 (Version None)
Quarter: 2004Q1

REPORT INFORMATION
  Report Type: 
  Country: None (occurrence: None)
  Receive Date: 20040226
  Receipt Date: 20040220
  Transmission Date: 20041129
  Serious: Yes (Other)
  Sender: FDA-Public Use
  Company Number: 2003-03-2467

PATIENT
  Sex: Male

DRUGS (2)
  1. RIBAVIRIN [Suspect]
     Indication: HEPATITIS C
  2. PEGASYS [Suspect]
     Indication: HEPATITIS C
     Dosage: INTRAVENOUS
     Route: 042

REACTIONS (5)
  - ASCITES [None]
  - COUGH [None]
  - HAEMOGLOBIN DECREASED [None]
  - NASOPHARYNGITIS [None]
  - OEDEMA PERIPHERAL [None]
